FAERS Safety Report 8926436 (Version 2)
Quarter: 2012Q4

REPORT INFORMATION
  Report Type: 
  Country: US (occurrence: US)
  Receive Date: 20121127
  Receipt Date: 20121213
  Transmission Date: 20130627
  Serious: Yes (Other)
  Sender: FDA-Public Use
  Company Number: US-UCBSA-071342

PATIENT
  Sex: Male

DRUGS (1)
  1. KEPPRA [Suspect]
     Indication: CONVULSION
     Dosage: STRENGTH: 750 MG

REACTIONS (2)
  - Loss of consciousness [Not Recovered/Not Resolved]
  - Convulsion [Not Recovered/Not Resolved]
